FAERS Safety Report 20553396 (Version 1)
Quarter: 2022Q1

REPORT INFORMATION
  Report Type: Report from Study
  Country: CA (occurrence: CA)
  Receive Date: 20220304
  Receipt Date: 20220304
  Transmission Date: 20220424
  Serious: Yes (Hospitalization, Other)
  Sender: FDA-Public Use
  Company Number: CA-BAUSCH-BL-2021-037161

PATIENT
  Age: 77 Year
  Sex: Male
  Weight: 95.340 kg

DRUGS (7)
  1. SILIQ [Suspect]
     Active Substance: BRODALUMAB
     Indication: Psoriasis
     Dosage: DOSAGE: 210MG/1.5ML, WEEK 0, WEEK 1 AND WEEK 2
     Route: 058
     Dates: start: 20211104, end: 202111
  2. SILIQ [Suspect]
     Active Substance: BRODALUMAB
     Dosage: DOSAGE: 210MG/1.5ML
     Route: 058
     Dates: start: 202111
  3. SILIQ [Suspect]
     Active Substance: BRODALUMAB
     Dosage: DOSAGE: 210MG/1.5ML
     Route: 058
     Dates: start: 2022
  4. SYNTHROID [Concomitant]
     Active Substance: LEVOTHYROXINE SODIUM
     Indication: Product used for unknown indication
  5. VITAMIN D [Concomitant]
     Active Substance: VITAMIN D NOS
     Indication: Product used for unknown indication
  6. ROSUVASTATIN [Concomitant]
     Active Substance: ROSUVASTATIN
     Indication: Product used for unknown indication
  7. PANTROZOLE [Concomitant]
     Indication: Product used for unknown indication

REACTIONS (4)
  - Hip fracture [Unknown]
  - Neck pain [Not Recovered/Not Resolved]
  - Musculoskeletal discomfort [Not Recovered/Not Resolved]
  - Arthralgia [Not Recovered/Not Resolved]

NARRATIVE: CASE EVENT DATE: 20211109
